FAERS Safety Report 5581922-5 (Version None)
Quarter: 2008Q1

REPORT INFORMATION
  Report Type: 
  Country: None (occurrence: None)
  Receive Date: 20080104
  Receipt Date: 20071112
  Transmission Date: 20080703
  Serious: Yes (Other)
  Sender: FDA-Public Use
  Company Number: US-PURDUE-USA_2007_0030251

PATIENT
  Sex: Female

DRUGS (3)
  1. PERCOCET [Concomitant]
     Indication: BREAKTHROUGH PAIN
     Dosage: 5 MG, UNK
     Route: 048
  2. LORASET [Concomitant]
     Indication: BREAKTHROUGH PAIN
     Dosage: 5 MG, UNK
     Route: 048
  3. OXYCONTIN [Suspect]
     Indication: PAIN
     Dosage: 60 MG, TID
     Route: 048
     Dates: start: 19990101

REACTIONS (6)
  - ANXIETY [None]
  - DRUG DEPENDENCE [None]
  - INFERTILITY FEMALE [None]
  - SOCIAL AVOIDANT BEHAVIOUR [None]
  - STRESS [None]
  - SUICIDAL IDEATION [None]
